FAERS Safety Report 14258982 (Version 4)
Quarter: 2017Q4

REPORT INFORMATION
  Report Type: Spontaneous
  Country: JP (occurrence: JP)
  Receive Date: 20171207
  Receipt Date: 20171228
  Transmission Date: 20180321
  Serious: Yes (Other)
  Sender: FDA-Public Use
  Company Number: PHJP2017JP034860

PATIENT
  Sex: Male
  Weight: 3.94 kg

DRUGS (2)
  1. CICLOSPORIN [Suspect]
     Active Substance: CYCLOSPORINE
     Indication: MEVALONATE KINASE DEFICIENCY
     Dosage: UNK
     Route: 048
  2. PREDNISOLONE. [Concomitant]
     Active Substance: PREDNISOLONE
     Indication: PRODUCT USED FOR UNKNOWN INDICATION
     Route: 065

REACTIONS (10)
  - Sepsis [Unknown]
  - Staphylococcal infection [Unknown]
  - Respiratory syncytial virus infection [Unknown]
  - Failure to thrive [Unknown]
  - Muscular weakness [Unknown]
  - Product use in unapproved indication [Unknown]
  - Concomitant disease aggravated [Unknown]
  - Interstitial lung disease [Unknown]
  - Psychomotor skills impaired [Unknown]
  - Pyrexia [Unknown]
